FAERS Safety Report 5378673-9 (Version None)
Quarter: 2007Q3

REPORT INFORMATION
  Report Type: 
  Country: None (occurrence: None)
  Receive Date: 20070702
  Receipt Date: 20070702
  Transmission Date: 20080115
  Serious: Yes (Life-Threatening)
  Sender: FDA-Public Use
  Company Number: None

PATIENT
  Age: 40 Year
  Sex: Female
  Weight: 63.05 kg

DRUGS (3)
  1. ATROVENT HFA [Suspect]
     Indication: BRONCHITIS CHRONIC
     Dosage: 2 PUFFS 4TIMES A DAY INHAL
     Route: 055
     Dates: start: 20070627, end: 20070627
  2. ATROVENT HFA [Suspect]
     Indication: BRONCHOSPASM
     Dosage: 2 PUFFS 4TIMES A DAY INHAL
     Route: 055
     Dates: start: 20070627, end: 20070627
  3. ATROVENT HFA [Suspect]
     Indication: VOCAL CORD DISORDER
     Dosage: 2 PUFFS 4TIMES A DAY INHAL
     Route: 055
     Dates: start: 20070627, end: 20070627

REACTIONS (6)
  - ASTHENIA [None]
  - BRONCHOSPASM [None]
  - CHEST DISCOMFORT [None]
  - DYSPNOEA [None]
  - PHARMACEUTICAL PRODUCT COMPLAINT [None]
  - SENSORY DISTURBANCE [None]
